FAERS Safety Report 8642635 (Version 3)
Quarter: 2012Q4

REPORT INFORMATION
  Report Type: 
  Country: US (occurrence: US)
  Receive Date: 20120629
  Receipt Date: 20120830
  Transmission Date: 20130627
  Serious: No
  Sender: FDA-Public Use
  Company Number: US-PFIZER INC-2012153187

PATIENT
  Age: 76 Year
  Sex: Female
  Weight: 66.67 kg

DRUGS (10)
  1. PREMARIN [Suspect]
     Indication: VULVOVAGINAL DRYNESS
     Dosage: UNK, daily
     Route: 067
     Dates: start: 2011, end: 201201
  2. SYNTHROID [Concomitant]
     Indication: THYROID DISORDER
     Dosage: 137 ug, Daily
  3. SYNTHROID [Concomitant]
     Dosage: 137 mg, alternate day
  4. ZANTAC [Concomitant]
     Indication: GASTROOESOPHAGEAL REFLUX DISEASE
     Dosage: 300 mg, Daily
  5. VITAMIN D [Concomitant]
     Dosage: UNK, cyclic
  6. CALCIUM [Concomitant]
     Dosage: UNK, 1x/day
  7. MOBIC [Concomitant]
     Indication: ARTHRITIS
     Dosage: 15 mg, Daily
  8. MOBIC [Concomitant]
     Indication: PAIN
  9. PREMARIN [Concomitant]
     Indication: HORMONE REPLACEMENT THERAPY
     Dosage: 0.45 mg, Daily
     Route: 048
  10. RANITIDINE [Concomitant]
     Indication: ABDOMINAL DISCOMFORT
     Dosage: 0.045 mg, as needed

REACTIONS (1)
  - Drug ineffective [Unknown]
